FAERS Safety Report 7054779-3 (Version None)
Quarter: 2010Q4

REPORT INFORMATION
  Report Type: 
  Country: None (occurrence: None)
  Receive Date: 20101020
  Receipt Date: 20101007
  Transmission Date: 20110411
  Serious: Yes (Death, Life-Threatening, Hospitalization)
  Sender: FDA-Public Use
  Company Number: US-MYLANLABS-2010S1018749

PATIENT
  Age: 36 Year
  Sex: Male

DRUGS (1)
  1. METFORMIN [Suspect]
     Indication: HYPERGLYCAEMIA
     Route: 065

REACTIONS (3)
  - HEPATORENAL SYNDROME [None]
  - LACTIC ACIDOSIS [None]
  - PARTIAL SEIZURES [None]
